FAERS Safety Report 5302978-0 (Version None)
Quarter: 2007Q2

REPORT INFORMATION
  Report Type: 
  Country: None (occurrence: None)
  Receive Date: 20070417
  Receipt Date: 20070417
  Transmission Date: 20071010
  Serious: Yes (Death, Hospitalization, Other)
  Sender: FDA-Public Use
  Company Number: None

PATIENT
  Age: 52 Year
  Sex: Female
  Weight: 64 kg

DRUGS (15)
  1. IRESSA [Suspect]
     Indication: METASTASES TO MENINGES
     Dosage: 1000MG PO QD
     Route: 048
     Dates: start: 20070227
  2. IRESSA [Suspect]
     Indication: NON-SMALL CELL LUNG CANCER
     Dosage: 1000MG PO QD
     Route: 048
     Dates: start: 20070227
  3. IRESSA [Suspect]
     Indication: METASTASES TO MENINGES
     Dosage: 1000MG PO QD
     Route: 048
     Dates: start: 20070327
  4. IRESSA [Suspect]
     Indication: NON-SMALL CELL LUNG CANCER
     Dosage: 1000MG PO QD
     Route: 048
     Dates: start: 20070327
  5. IRESSA [Suspect]
     Indication: METASTASES TO MENINGES
     Dosage: 500MG PO QD
     Route: 048
     Dates: start: 20070313, end: 20070326
  6. IRESSA [Suspect]
     Indication: NON-SMALL CELL LUNG CANCER
     Dosage: 500MG PO QD
     Route: 048
     Dates: start: 20070313, end: 20070326
  7. AMBIEN [Concomitant]
  8. ATIVAN [Concomitant]
  9. CENTRUM SILVER [Concomitant]
  10. DEXAMETHASONE 0.5MG TAB [Concomitant]
  11. KEPPRA [Concomitant]
  12. REMERON [Concomitant]
  13. NYSTATIN [Concomitant]
  14. VICODEN [Concomitant]
  15. DIFLUCAN [Concomitant]

REACTIONS (5)
  - DIARRHOEA [None]
  - DISEASE PROGRESSION [None]
  - EYELID BLEEDING [None]
  - PARANEOPLASTIC PEMPHIGUS [None]
  - TOXIC EPIDERMAL NECROLYSIS [None]
